FAERS Safety Report 24173631 (Version 1)
Quarter: 2024Q3

REPORT INFORMATION
  Report Type: Report from Study
  Country: US (occurrence: US)
  Receive Date: 20240805
  Receipt Date: 20240805
  Transmission Date: 20241017
  Serious: Yes (Hospitalization, Other)
  Sender: INVENTIA HEALTHCARE
  Company Number: US-IHL-000597

PATIENT
  Sex: Female

DRUGS (5)
  1. QUETIAPINE [Suspect]
     Active Substance: QUETIAPINE
     Indication: Foetal exposure during pregnancy
     Route: 064
  2. CLONAZEPAM [Suspect]
     Active Substance: CLONAZEPAM
     Indication: Foetal exposure during pregnancy
     Route: 064
  3. INSULIN NOS [Suspect]
     Active Substance: INSULIN NOS
     Indication: Foetal exposure during pregnancy
     Route: 064
  4. ZONISAMIDE [Suspect]
     Active Substance: ZONISAMIDE
     Indication: Foetal exposure during pregnancy
     Route: 064
  5. FLUOXETINE HYDROCHLORIDE [Suspect]
     Active Substance: FLUOXETINE HYDROCHLORIDE
     Indication: Foetal exposure during pregnancy
     Route: 064

REACTIONS (6)
  - Electroencephalogram abnormal [Unknown]
  - Hypotonia neonatal [Unknown]
  - Infantile apnoea [Unknown]
  - Tremor [Not Recovered/Not Resolved]
  - Neonatal disorder [Unknown]
  - Foetal exposure during pregnancy [Unknown]
